FAERS Safety Report 9518042 (Version 1)
Quarter: 2013Q3

REPORT INFORMATION
  Report Type: Spontaneous
  Country: US (occurrence: US)
  Receive Date: 20130912
  Receipt Date: 20130912
  Transmission Date: 20140515
  Serious: Yes (Other)
  Sender: FDA-Public Use
  Company Number: US-PFIZER INC-2013257352

PATIENT
  Sex: 0

DRUGS (2)
  1. ZITHROMAX [Suspect]
     Dosage: UNK
     Dates: end: 2013
  2. ZOFRAN [Concomitant]
     Dosage: UNK

REACTIONS (1)
  - Electrocardiogram QT prolonged [Unknown]
